FAERS Safety Report 5521796-1 (Version None)
Quarter: 2007Q4

REPORT INFORMATION
  Report Type: 
  Country: None (occurrence: None)
  Receive Date: 20071120
  Receipt Date: 20071109
  Transmission Date: 20080405
  Serious: Yes (Hospitalization)
  Sender: FDA-Public Use
  Company Number: JP-JNJFOC-20071004347

PATIENT
  Sex: Male

DRUGS (3)
  1. CRAVIT [Suspect]
     Indication: NASOPHARYNGITIS
     Route: 048
  2. LOXONIN [Suspect]
     Indication: NASOPHARYNGITIS
     Route: 048
  3. SELBEX [Concomitant]
     Indication: NASOPHARYNGITIS
     Route: 048

REACTIONS (1)
  - LUNG DISORDER [None]
